FAERS Safety Report 7182924-8 (Version None)
Quarter: 2010Q4

REPORT INFORMATION
  Report Type: 
  Country: None (occurrence: None)
  Receive Date: 20101209
  Receipt Date: 20101201
  Transmission Date: 20110411
  Serious: Yes (Life-Threatening, Hospitalization)
  Sender: FDA-Public Use
  Company Number: 2010JP006731

PATIENT
  Age: 72 Year
  Sex: Female
  Weight: 50 kg

DRUGS (9)
  1. PROGRAF [Suspect]
     Indication: RHEUMATOID ARTHRITIS
     Dosage: 1 MG, UID/QD, ORAL
     Route: 048
     Dates: start: 20101019, end: 20101116
  2. OLMESARTAN MEDOXOMIL [Suspect]
     Indication: HYPERTENSION
     Dosage: 20 MG, UID/QD, ORAL
     Route: 048
     Dates: start: 20060420, end: 20101116
  3. PREDNISOLONE [Concomitant]
  4. METHOTREXATE SODIUM [Concomitant]
  5. CYTOTEC [Concomitant]
  6. NEUROTROPIN (THIAMINE HYDROCHLORIDE) TABLET [Concomitant]
  7. GLAKAY (MENATETRENONE) CAPSULE [Concomitant]
  8. FAMOTIDINE [Concomitant]
  9. CRESTOR (ROSUVASTATIN) TABLET [Concomitant]

REACTIONS (3)
  - DRUG INTERACTION [None]
  - HYPERKALAEMIA [None]
  - METABOLIC ACIDOSIS [None]
